FAERS Safety Report 4585264-6 (Version None)
Quarter: 2005Q1

REPORT INFORMATION
  Report Type: 
  Country: None (occurrence: None)
  Receive Date: 20050217
  Receipt Date: 20050208
  Transmission Date: 20050727
  Serious: Yes (Other)
  Sender: FDA-Public Use
  Company Number: US-JNJFOC-20040907721

PATIENT
  Age: 30 Year
  Sex: Female
  Weight: 102.06 kg

DRUGS (18)
  1. RISPERDAL [Suspect]
     Route: 049
  2. RISPERDAL [Suspect]
     Route: 049
  3. RISPERDAL [Suspect]
     Indication: DRUG USE FOR UNKNOWN INDICATION
     Route: 049
  4. DEPAKOTE [Concomitant]
  5. COLACE [Concomitant]
  6. MAVIK [Concomitant]
  7. TOPROL-XL [Concomitant]
  8. ALDACTONE [Concomitant]
  9. KLONOPIN [Concomitant]
  10. FLEXERIL [Concomitant]
  11. SYMMETREL [Concomitant]
  12. PEPCID [Concomitant]
  13. ECOTRIN [Concomitant]
  14. ALBUTERAL [Concomitant]
     Route: 055
  15. NIZORAL [Concomitant]
  16. BETAMETHASONE [Concomitant]
  17. DARVOCET [Concomitant]
  18. DARVOCET [Concomitant]

REACTIONS (2)
  - ELECTROCARDIOGRAM QT CORRECTED INTERVAL PROLONGED [None]
  - ELECTROCARDIOGRAM QT PROLONGED [None]
